FAERS Safety Report 5311622-8 (Version None)
Quarter: 2007Q1

REPORT INFORMATION
  Report Type: 
  Country: None (occurrence: None)
  Receive Date: 20070201
  Receipt Date: 20061129
  Transmission Date: 20070707
  Serious: No
  Sender: FDA-Public Use
  Company Number: 259072

PATIENT
  Age: 58 Year
  Sex: Female
  Weight: 97.1 kg

DRUGS (1)
  1. LEVEMIR [Suspect]
     Indication: INSULIN-REQUIRING TYPE II DIABETES MELLITUS
     Dosage: 10 IU; 55 IU, QD, SUBCUTANEOUS
     Route: 058
     Dates: start: 20060501

REACTIONS (2)
  - ABDOMINAL PAIN UPPER [None]
  - INJECTION SITE PAIN [None]
